FAERS Safety Report 26002072 (Version 1)
Quarter: 2025Q4

REPORT INFORMATION
  Report Type: Spontaneous
  Country: CN (occurrence: CN)
  Receive Date: 20251105
  Receipt Date: 20251105
  Transmission Date: 20260118
  Serious: Yes (Hospitalization)
  Sender: ELI LILLY AND COMPANY
  Company Number: CN-ELI_LILLY_AND_COMPANY-CN202509027519

PATIENT
  Age: 62 Year
  Sex: Female

DRUGS (1)
  1. KISUNLA [Suspect]
     Active Substance: DONANEMAB-AZBT
     Indication: Cognitive disorder
     Dosage: 700 MG, MONTHLY (1/M) (ONCE PER 4 WEEKS)
     Route: 041

REACTIONS (4)
  - Mental impairment [Recovering/Resolving]
  - Hypoaesthesia [Unknown]
  - Somnolence [Unknown]
  - Confusional state [Unknown]
